FAERS Safety Report 13304400 (Version 1)
Quarter: 2017Q1

REPORT INFORMATION
  Report Type: Spontaneous
  Country: CA (occurrence: CA)
  Receive Date: 20170308
  Receipt Date: 20170308
  Transmission Date: 20170428
  Serious: Yes (Other)
  Sender: FDA-Public Use
  Company Number: CA-TEVA-746185ACC

PATIENT
  Age: 44 Week
  Sex: Female
  Weight: 55 kg

DRUGS (9)
  1. ISENTRESS [Concomitant]
     Active Substance: RALTEGRAVIR POTASSIUM
  2. AZITHROMYCIN ANHYDROUS. [Concomitant]
     Active Substance: AZITHROMYCIN ANHYDROUS
  3. PANTOPRAZOLE [Concomitant]
     Active Substance: PANTOPRAZOLE SODIUM
  4. ETHAMBUTOL [Concomitant]
     Active Substance: ETHAMBUTOL HYDROCHLORIDE
  5. TRIMETHOPRIM-SULFAMETHOXAZOLE DS [Suspect]
     Active Substance: SULFAMETHOXAZOLE\TRIMETHOPRIM
     Indication: ANTIFUNGAL PROPHYLAXIS
     Dosage: 1 DOSAGE FORMS DAILY;
     Route: 048
  6. EMTRICITABINE [Concomitant]
     Active Substance: EMTRICITABINE
  7. RIFABUTIN. [Concomitant]
     Active Substance: RIFABUTIN
  8. TENOFOVIR [Concomitant]
     Active Substance: TENOFOVIR
  9. NYSTATIN. [Concomitant]
     Active Substance: NYSTATIN

REACTIONS (2)
  - Treatment noncompliance [Recovered/Resolved]
  - Pancytopenia [Recovered/Resolved]
